FAERS Safety Report 20160912 (Version 1)
Quarter: 2021Q4

REPORT INFORMATION
  Report Type: Spontaneous
  Country: US (occurrence: US)
  Receive Date: 20211208
  Receipt Date: 20211208
  Transmission Date: 20220304
  Serious: No
  Sender: FDA-Public Use
  Company Number: US-009507513-2111USA008665

PATIENT
  Age: 67 Year
  Sex: Male

DRUGS (1)
  1. VERQUVO [Suspect]
     Active Substance: VERICIGUAT
     Dosage: UNK

REACTIONS (3)
  - Fatigue [Unknown]
  - Malaise [Unknown]
  - Glomerular filtration rate decreased [Unknown]
